FAERS Safety Report 20217645 (Version 1)
Quarter: 2021Q4

REPORT INFORMATION
  Report Type: Spontaneous
  Country: SI (occurrence: None)
  Receive Date: 20211222
  Receipt Date: 20211222
  Transmission Date: 20220303
  Serious: Yes (Other)
  Sender: FDA-Public Use
  Company Number: SI-ROCHE-2978639

PATIENT
  Age: 59 Year
  Sex: Female

DRUGS (15)
  1. ATEZOLIZUMAB [Suspect]
     Active Substance: ATEZOLIZUMAB
     Indication: Hepatocellular carcinoma
     Dosage: 1200 MG IV Q3W
     Route: 041
  2. BEVACIZUMAB [Suspect]
     Active Substance: BEVACIZUMAB
     Indication: Hepatocellular carcinoma
     Dosage: 15 MG/KG Q3W
     Route: 041
  3. SORAFENIB [Concomitant]
     Active Substance: SORAFENIB
     Dosage: 400 MG BID
  4. CAROTUXIMAB [Concomitant]
     Active Substance: CAROTUXIMAB
  5. LENVATINIB [Concomitant]
     Active Substance: LENVATINIB
  6. NIVOLUMAB [Concomitant]
     Active Substance: NIVOLUMAB
  7. REGORAFENIB [Concomitant]
     Active Substance: REGORAFENIB
  8. DURVALUMAB [Concomitant]
     Active Substance: DURVALUMAB
  9. TREMELIMUMAB [Concomitant]
     Active Substance: TREMELIMUMAB
  10. PEMBROLIZUMAB [Concomitant]
     Active Substance: PEMBROLIZUMAB
  11. DONAFENIB [Concomitant]
  12. DOXORUBICIN [Concomitant]
     Active Substance: DOXORUBICIN
  13. SUNITINIB [Concomitant]
     Active Substance: SUNITINIB
  14. BRIVANIB [Concomitant]
     Active Substance: BRIVANIB
  15. LINIFANIB [Concomitant]
     Active Substance: LINIFANIB

REACTIONS (1)
  - Liver disorder [Unknown]
